FAERS Safety Report 16202871 (Version 1)
Quarter: 2019Q2

REPORT INFORMATION
  Report Type: Spontaneous
  Country: ZA (occurrence: ZA)
  Receive Date: 20190416
  Receipt Date: 20190416
  Transmission Date: 20190711
  Serious: Yes (Life-Threatening, Hospitalization, Other)
  Sender: FDA-Public Use
  Company Number: ZA-BAYER-2019-071480

PATIENT
  Age: 25 Year
  Sex: Female

DRUGS (2)
  1. MIRENA [Suspect]
     Active Substance: LEVONORGESTREL
     Dosage: 20 MCG/24HR, CONT
     Route: 015
  2. MIRENA [Suspect]
     Active Substance: LEVONORGESTREL
     Indication: CONTRACEPTION

REACTIONS (8)
  - Device deployment issue [None]
  - Nasopharyngitis [None]
  - Post-traumatic stress disorder [None]
  - Tremor [None]
  - Dizziness [None]
  - Loss of consciousness [None]
  - Genital haemorrhage [Not Recovered/Not Resolved]
  - Procedural haemorrhage [None]
